FAERS Safety Report 23961567 (Version 1)
Quarter: 2024Q2

REPORT INFORMATION
  Report Type: Spontaneous
  Country: US (occurrence: US)
  Receive Date: 20240611
  Receipt Date: 20240611
  Transmission Date: 20240716
  Serious: Yes (Hospitalization)
  Sender: FDA-Public Use
  Company Number: US-EPICPHARMA-US-2024EPCLIT00658

PATIENT
  Age: 96 Year
  Sex: Female

DRUGS (1)
  1. TIMOLOL MALEATE [Suspect]
     Active Substance: TIMOLOL MALEATE
     Indication: Glaucoma
     Route: 065

REACTIONS (2)
  - Orthostatic hypotension [Recovering/Resolving]
  - Tachycardia [Recovering/Resolving]
